FAERS Safety Report 20762363 (Version 6)
Quarter: 2022Q3

REPORT INFORMATION
  Report Type: Other
  Country: IN (occurrence: None)
  Receive Date: 20220428
  Receipt Date: 20220803
  Transmission Date: 20221027
  Serious: Yes (Other)
  Sender: FDA-Public Use
  Company Number: IN-ROCHE-3061118

PATIENT
  Age: 71 Year
  Sex: Male

DRUGS (4)
  1. TECENTRIQ [Suspect]
     Active Substance: ATEZOLIZUMAB
     Indication: Non-small cell lung cancer
     Route: 042
     Dates: start: 20210710, end: 20220720
  2. TECENTRIQ [Suspect]
     Active Substance: ATEZOLIZUMAB
     Indication: Adenosquamous cell lung cancer
  3. AVASTIN [Suspect]
     Active Substance: BEVACIZUMAB
     Indication: Non-small cell lung cancer
     Route: 042
     Dates: start: 20210710, end: 20220720
  4. AVASTIN [Suspect]
     Active Substance: BEVACIZUMAB
     Indication: Adenosquamous cell lung cancer

REACTIONS (9)
  - Asthenia [Unknown]
  - Poor quality sleep [Unknown]
  - Decreased appetite [Unknown]
  - Constipation [Unknown]
  - Pneumonia [Unknown]
  - Arthralgia [Unknown]
  - Myalgia [Unknown]
  - Pain [Unknown]
  - Diarrhoea [Unknown]
